FAERS Safety Report 7810082-2 (Version None)
Quarter: 2011Q4

REPORT INFORMATION
  Report Type: 
  Country: None (occurrence: None)
  Receive Date: 20111012
  Receipt Date: 20111004
  Transmission Date: 20120403
  Serious: Yes (Other)
  Sender: FDA-Public Use
  Company Number: US-TYCO HEALTHCARE/MALLINCKRODT-T201100307

PATIENT
  Sex: Female

DRUGS (4)
  1. OPTIMARK [Suspect]
  2. OPTIMARK [Suspect]
     Indication: NUCLEAR MAGNETIC RESONANCE IMAGING
     Dosage: UNK
     Dates: start: 20021101, end: 20021101
  3. OPTIMARK [Suspect]
     Indication: NUCLEAR MAGNETIC RESONANCE IMAGING ABDOMINAL
     Dosage: UNK
     Dates: start: 20020826, end: 20020826
  4. OPTIMARK [Suspect]
     Indication: ANGIOGRAM
     Dosage: UNK
     Dates: start: 20021021, end: 20021021

REACTIONS (13)
  - CERVICITIS [None]
  - PERICARDIAL EFFUSION [None]
  - TRICUSPID VALVE INCOMPETENCE [None]
  - NEURODERMATITIS [None]
  - TUBO-OVARIAN ABSCESS [None]
  - DEVICE DISLOCATION [None]
  - BURSITIS [None]
  - SKIN HYPERPIGMENTATION [None]
  - PALPITATIONS [None]
  - DERMATITIS [None]
  - NEPHROGENIC SYSTEMIC FIBROSIS [None]
  - OSTEOARTHRITIS [None]
  - HYPOAESTHESIA [None]
